FAERS Safety Report 6774492-7 (Version None)
Quarter: 2010Q2

REPORT INFORMATION
  Report Type: 
  Country: None (occurrence: None)
  Receive Date: 20100617
  Receipt Date: 20100608
  Transmission Date: 20101027
  Serious: Yes (Other)
  Sender: FDA-Public Use
  Company Number: PHHY2010FR31742

PATIENT
  Sex: Male
  Weight: 82 kg

DRUGS (6)
  1. RASILEZ [Suspect]
     Indication: HYPERTENSION
     Dosage: 150 MG, UNK
  2. RASILEZ [Suspect]
     Dosage: 300 MG QD
     Route: 048
     Dates: start: 20100218, end: 20100507
  3. ZANIDIP [Concomitant]
     Indication: HYPERTENSION
     Dosage: 20 MG QD
     Route: 048
     Dates: start: 20060616
  4. MEDIATENSYL [Concomitant]
     Indication: HYPERTENSION
     Dosage: 60 MG BID
     Route: 048
     Dates: start: 20060616
  5. BUMEX [Concomitant]
     Indication: HYPERTENSION
     Dosage: 5 MG BID
     Route: 048
     Dates: start: 20060616
  6. SYMBICORT [Concomitant]
     Indication: ASTHMA
     Dosage: 400 MCG BID
     Dates: start: 20060616

REACTIONS (4)
  - ASTHENIA [None]
  - DYSPNOEA [None]
  - MUSCULAR WEAKNESS [None]
  - MYALGIA [None]
